FAERS Safety Report 25283037 (Version 6)
Quarter: 2025Q2

REPORT INFORMATION
  Report Type: Report from Study
  Country: FR (occurrence: FR)
  Receive Date: 20250508
  Receipt Date: 20250620
  Transmission Date: 20250716
  Serious: Yes (Hospitalization, Other)
  Sender: NOVARTIS
  Company Number: FR-002147023-NVSC2024FR208036

PATIENT
  Age: 53 Year
  Sex: Male
  Weight: 97 kg

DRUGS (8)
  1. VIJOICE [Suspect]
     Active Substance: ALPELISIB
     Indication: Cowden^s disease
     Dosage: 250 MG, QD
     Route: 048
     Dates: start: 20240219, end: 20241009
  2. VIJOICE [Suspect]
     Active Substance: ALPELISIB
     Dosage: 125 MG QD (DOSE REDUCED) (DAILY ONCE IN THE EVENING)
     Route: 048
     Dates: start: 20241009, end: 20250327
  3. RAMIPRIL [Concomitant]
     Active Substance: RAMIPRIL
     Indication: Hypertension
     Dosage: 10 MG, QD (1 TABLET IN THE MORNING)
     Route: 065
  4. BISOPROLOL [Concomitant]
     Active Substance: BISOPROLOL
     Indication: Hypertension
     Route: 065
  5. KARDEGIC [Concomitant]
     Active Substance: ASPIRIN DL-LYSINE
     Indication: Product used for unknown indication
     Dosage: 75 MG, QD (1 SACHET AT LUNCHTIME)
     Route: 065
  6. OXAZEPAM [Concomitant]
     Active Substance: OXAZEPAM
     Indication: Product used for unknown indication
     Dosage: 10 MG, QD (1 TABLET IN THE EVENING)
     Route: 065
  7. ATORVASTATIN [Concomitant]
     Active Substance: ATORVASTATIN
     Indication: Product used for unknown indication
     Dosage: 20 MG, QD (1 TABLET IN THE EVENING)
     Route: 065
  8. DOLIPRANE [Concomitant]
     Active Substance: ACETAMINOPHEN
     Indication: Product used for unknown indication
     Route: 065

REACTIONS (14)
  - Diabetes mellitus [Unknown]
  - Hyperglycaemia [Recovering/Resolving]
  - Polyuria [Unknown]
  - Fatigue [Unknown]
  - Polydipsia [Unknown]
  - Weight decreased [Unknown]
  - Ketonuria [Unknown]
  - Asthenia [Unknown]
  - Dry mouth [Unknown]
  - Drug effect less than expected [Unknown]
  - Diabetic retinopathy [Unknown]
  - Microalbuminuria [Unknown]
  - Gamma-glutamyltransferase increased [Unknown]
  - Blood bilirubin increased [Unknown]

NARRATIVE: CASE EVENT DATE: 20241007
